FAERS Safety Report 7273704-3 (Version None)
Quarter: 2010Q4

REPORT INFORMATION
  Report Type: 
  Country: None (occurrence: None)
  Receive Date: 20101130
  Receipt Date: 20100729
  Transmission Date: 20110411
  Serious: Yes (Life-Threatening, Hospitalization, Other)
  Sender: FDA-Public Use
  Company Number: 2010SP041565

PATIENT
  Age: 41 Year
  Sex: Female

DRUGS (4)
  1. NUVARING [Suspect]
     Indication: CONTRACEPTION
     Dosage: 1 DF;QM;VAG
     Route: 067
     Dates: start: 20100618, end: 20100720
  2. NUVARING [Suspect]
     Indication: MENSTRUAL DISORDER
     Dosage: 1 DF;QM;VAG
     Route: 067
     Dates: start: 20100618, end: 20100720
  3. OMEPRAZOLE [Concomitant]
  4. GLUCOSAMINE [Concomitant]

REACTIONS (1)
  - PULMONARY EMBOLISM [None]
